FAERS Safety Report 24726989 (Version 4)
Quarter: 2025Q1

REPORT INFORMATION
  Report Type: Spontaneous
  Country: GB (occurrence: GB)
  Receive Date: 20241212
  Receipt Date: 20250122
  Transmission Date: 20250409
  Serious: Yes (Hospitalization, Other)
  Sender: MYLAN
  Company Number: GB-MYLANLABS-2024M1111637

PATIENT
  Sex: Male

DRUGS (2)
  1. CLOZARIL [Suspect]
     Active Substance: CLOZAPINE
     Indication: Schizophrenia
     Dosage: UNK, BID (100 MG IN THE MORNING AND 300 MG IN THE EVENING)
     Route: 048
     Dates: start: 20201210, end: 20241208
  2. CLOZARIL [Suspect]
     Active Substance: CLOZAPINE
     Route: 048
     Dates: start: 20250110

REACTIONS (3)
  - Mental impairment [Unknown]
  - Schizophrenia [Unknown]
  - Therapy interrupted [Recovered/Resolved]
